FAERS Safety Report 17926879 (Version 2)
Quarter: 2020Q3

REPORT INFORMATION
  Report Type: Spontaneous
  Country: CA (occurrence: CA)
  Receive Date: 20200623
  Receipt Date: 20200717
  Transmission Date: 20201103
  Serious: Yes (Other)
  Sender: FDA-Public Use
  Company Number: CA-ROCHE-2627206

PATIENT
  Age: 81 Year
  Sex: Female

DRUGS (1)
  1. BEVACIZUMAB. [Suspect]
     Active Substance: BEVACIZUMAB
     Indication: NEOVASCULAR AGE-RELATED MACULAR DEGENERATION
     Route: 042

REACTIONS (7)
  - Vitritis [Unknown]
  - Off label use [Unknown]
  - Intentional product use issue [Unknown]
  - Eye pain [Unknown]
  - Blindness [Unknown]
  - Hypopyon [Unknown]
  - Endophthalmitis [Unknown]
